FAERS Safety Report 7996401-5 (Version None)
Quarter: 2011Q4

REPORT INFORMATION
  Report Type: 
  Country: None (occurrence: None)
  Receive Date: 20111220
  Receipt Date: 20111209
  Transmission Date: 20120403
  Serious: Yes (Death, Hospitalization)
  Sender: FDA-Public Use
  Company Number: JP-AMGEN-JPNCT2011021051

PATIENT
  Age: 62 Year
  Sex: Male
  Weight: 56 kg

DRUGS (15)
  1. ALOSENN [Concomitant]
     Dosage: UNK
     Route: 048
  2. AMARYL [Concomitant]
     Dosage: UNK
     Route: 048
  3. HALCION [Concomitant]
     Dosage: UNK
     Route: 048
  4. LACTOBACILLUS BIFIDUS, LYOPHILIZED [Concomitant]
     Dosage: UNK
     Route: 048
  5. OXINORM [Concomitant]
     Dosage: UNK
     Route: 048
  6. GABAPENTIN [Concomitant]
     Dosage: UNK
     Route: 048
  7. OLOPATADINE HCL [Concomitant]
     Dosage: UNK
     Route: 048
  8. IRINOTECAN HCL [Suspect]
     Indication: COLORECTAL CANCER
     Route: 041
     Dates: start: 20100728, end: 20100728
  9. OMEGACIN [Suspect]
     Dosage: UNK
     Route: 042
  10. EBASTINE [Concomitant]
     Dosage: UNK
     Route: 048
  11. KETOPROFEN [Concomitant]
     Dosage: UNK
     Route: 062
  12. MONTELUKAST SODIUM [Concomitant]
     Dosage: UNK
     Route: 048
  13. PANITUMUMAB [Suspect]
     Indication: COLORECTAL CANCER
     Dosage: 6 MG/KG, Q2WK
     Route: 041
     Dates: start: 20100728, end: 20101109
  14. MAGMITT [Concomitant]
     Dosage: UNK
     Route: 048
  15. CORTICOSTEROIDS [Concomitant]
     Indication: PROPHYLAXIS
     Dosage: UNK
     Route: 065

REACTIONS (13)
  - FEBRILE NEUTROPENIA [None]
  - PNEUMONIA [None]
  - COLORECTAL CANCER [None]
  - STOMATITIS [None]
  - DIZZINESS [None]
  - BLOOD MAGNESIUM DECREASED [None]
  - SEPSIS [None]
  - HERPES SIMPLEX [None]
  - DIARRHOEA [None]
  - DECREASED APPETITE [None]
  - RASH [None]
  - PARONYCHIA [None]
  - NAUSEA [None]
